FAERS Safety Report 8887007 (Version 2)
Quarter: 2013Q3

REPORT INFORMATION
  Report Type: Spontaneous
  Country: US (occurrence: US)
  Receive Date: 20121105
  Receipt Date: 20130719
  Transmission Date: 20140515
  Serious: Yes (Hospitalization, Other)
  Sender: FDA-Public Use
  Company Number: US-TARO-2012P1061312

PATIENT
  Age: 33 Year
  Sex: Male

DRUGS (1)
  1. NAFTIN [Suspect]
     Route: 061
     Dates: start: 20120822, end: 20120920

REACTIONS (3)
  - Road traffic accident [Recovered/Resolved]
  - Wound drainage [Recovered/Resolved]
  - Injury [Recovered/Resolved]
